FAERS Safety Report 6160625-2 (Version None)
Quarter: 2009Q2

REPORT INFORMATION
  Report Type: 
  Country: None (occurrence: None)
  Receive Date: 20090416
  Receipt Date: 20090406
  Transmission Date: 20091009
  Serious: Yes (Other)
  Sender: FDA-Public Use
  Company Number: ADE2009-0538

PATIENT
  Age: 73 Year
  Sex: Female

DRUGS (6)
  1. FLUOXETINE [Suspect]
     Indication: DEPRESSION
     Dosage: 20MG, DAILY;
  2. LINEZOLID [Suspect]
     Indication: ENTEROCOCCAL INFECTION
     Dosage: 600 MG, Q12 HOURS;
  3. FENTANYL [Suspect]
     Indication: ANALGESIA
     Dosage: 25UG, Q72; TRANSDERMAL
     Route: 062
  4. TRAMADOL HCL [Suspect]
     Dosage: 50MG, Q8HRS;
  5. PARACETAMOL [Concomitant]
  6. UNSPECIFIED ANTIBIOTICS [Concomitant]

REACTIONS (6)
  - DISLOCATION OF JOINT PROSTHESIS [None]
  - DRUG INTERACTION [None]
  - ENTEROCOCCAL INFECTION [None]
  - ESCHERICHIA INFECTION [None]
  - OSTEOMYELITIS [None]
  - SEROTONIN SYNDROME [None]
